FAERS Safety Report 25318919 (Version 1)
Quarter: 2025Q2

REPORT INFORMATION
  Report Type: Spontaneous
  Country: US (occurrence: None)
  Receive Date: 20250515
  Receipt Date: 20250515
  Transmission Date: 20250716
  Serious: No
  Sender: INCYTE
  Company Number: US-INCYTE CORPORATION-2025IN004989

PATIENT
  Age: 82 Year

DRUGS (1)
  1. JAKAFI [Suspect]
     Active Substance: RUXOLITINIB
     Indication: Product used for unknown indication
     Dosage: 5 MILLIGRAM, Q12H

REACTIONS (4)
  - Blood potassium abnormal [Unknown]
  - Blood sodium abnormal [Unknown]
  - Hypersensitivity [Unknown]
  - Decreased appetite [Unknown]
